FAERS Safety Report 25025593 (Version 1)
Quarter: 2025Q1

REPORT INFORMATION
  Report Type: Spontaneous
  Country: JP (occurrence: JP)
  Receive Date: 20250228
  Receipt Date: 20250228
  Transmission Date: 20250409
  Serious: Yes (Other)
  Sender: ASTELLAS
  Company Number: JP-ASTELLAS-2025-AER-011067

PATIENT
  Age: 75 Year
  Sex: Male

DRUGS (1)
  1. PADCEV [Suspect]
     Active Substance: ENFORTUMAB VEDOTIN-EJFV
     Indication: Product used for unknown indication
     Route: 058

REACTIONS (4)
  - Vascular device infection [Not Recovered/Not Resolved]
  - Infusion site discharge [Unknown]
  - Cellulitis [Not Recovered/Not Resolved]
  - Product administered at inappropriate site [Unknown]
